FAERS Safety Report 24244777 (Version 1)
Quarter: 2024Q3

REPORT INFORMATION
  Report Type: Spontaneous
  Country: FR (occurrence: FR)
  Receive Date: 20240823
  Receipt Date: 20240823
  Transmission Date: 20241017
  Serious: Yes (Hospitalization)
  Sender: TEVA
  Company Number: None

PATIENT
  Age: 63 Year
  Sex: Female
  Weight: 63 kg

DRUGS (2)
  1. METHOTREXATE [Suspect]
     Active Substance: METHOTREXATE
     Indication: Invasive lobular breast carcinoma
     Dosage: 200 MG/DAY, METHOTREXATE TEVA 10 PER CENT (5 G/50 ML), SOLUTION FOR INJECTION
     Route: 048
     Dates: start: 20240125, end: 20240621
  2. ABEMACICLIB [Suspect]
     Active Substance: ABEMACICLIB
     Indication: Invasive lobular breast carcinoma
     Dosage: 200 MG/DAY
     Route: 048
     Dates: start: 20240125, end: 20240621

REACTIONS (1)
  - Interstitial lung disease [Not Recovered/Not Resolved]

NARRATIVE: CASE EVENT DATE: 20240223
